FAERS Safety Report 17428107 (Version 1)
Quarter: 2020Q1

REPORT INFORMATION
  Report Type: Spontaneous
  Country: FR (occurrence: FR)
  Receive Date: 20200217
  Receipt Date: 20200217
  Transmission Date: 20200409
  Serious: Yes (Other)
  Sender: FDA-Public Use
  Company Number: PHHY2019FR121141

PATIENT
  Age: 42 Year
  Sex: Female

DRUGS (1)
  1. GILENYA [Suspect]
     Active Substance: FINGOLIMOD HYDROCHLORIDE
     Indication: EXPOSURE VIA PARTNER
     Dosage: PATERNAL DOSE: 0.5 MG, QD
     Route: 050

REACTIONS (2)
  - Exposure via partner [Unknown]
  - Abortion spontaneous [Unknown]
